FAERS Safety Report 18857698 (Version 1)
Quarter: 2021Q1

REPORT INFORMATION
  Report Type: Spontaneous
  Country: US (occurrence: US)
  Receive Date: 20210208
  Receipt Date: 20210208
  Transmission Date: 20210420
  Serious: Yes (Other)
  Sender: FDA-Public Use
  Company Number: US-SA-2021SA038404

PATIENT
  Sex: Female

DRUGS (1)
  1. AUBAGIO [Suspect]
     Active Substance: TERIFLUNOMIDE
     Indication: MULTIPLE SCLEROSIS
     Dosage: 14 MG, QD
     Route: 048
     Dates: start: 20201109

REACTIONS (7)
  - Multiple sclerosis relapse [Unknown]
  - Nausea [Unknown]
  - Oropharyngeal pain [Unknown]
  - Pain [Unknown]
  - Fatigue [Unknown]
  - Cough [Unknown]
  - Rhinorrhoea [Unknown]
